FAERS Safety Report 9854878 (Version 2)
Quarter: 2014Q2

REPORT INFORMATION
  Report Type: Spontaneous
  Country: US (occurrence: None)
  Receive Date: 20131226
  Receipt Date: 20140530
  Transmission Date: 20141212
  Serious: Yes (Other)
  Sender: FDA-Public Use
  Company Number: PHEH2013US013797

PATIENT
  Age: 44 Year
  Sex: Female
  Weight: 108.4 kg

DRUGS (2)
  1. AFINITOR (RAD) [Suspect]
     Indication: BREAST CANCER METASTATIC
     Route: 048
     Dates: start: 20130420, end: 20130605
  2. AROMASIN (EXEMESTANE) [Suspect]
     Indication: BREAST CANCER METASTATIC
     Dates: start: 20130420, end: 20130605

REACTIONS (1)
  - Hepatic enzyme increased [None]
